FAERS Safety Report 4362465-3 (Version None)
Quarter: 2004Q2

REPORT INFORMATION
  Report Type: 
  Country: None (occurrence: None)
  Receive Date: 20040521
  Receipt Date: 20040510
  Transmission Date: 20050107
  Serious: Yes (Other)
  Sender: FDA-Public Use
  Company Number: NL-GLAXOSMITHKLINE-B0332600A

PATIENT
  Age: 44 Year
  Sex: Female

DRUGS (3)
  1. PAROXETINE HCL [Suspect]
     Indication: ANXIETY DISORDER
     Route: 048
     Dates: start: 19950101
  2. LORMETAZEPAM [Concomitant]
     Dosage: 4MG PER DAY
  3. THYRAX [Concomitant]
     Dosage: .075MG PER DAY
     Route: 048
     Dates: start: 20040218

REACTIONS (5)
  - APHASIA [None]
  - DIZZINESS [None]
  - DRUG WITHDRAWAL SYNDROME [None]
  - MEMORY IMPAIRMENT [None]
  - WEIGHT DECREASED [None]
